FAERS Safety Report 21313420 (Version 1)
Quarter: 2022Q3

REPORT INFORMATION
  Report Type: Spontaneous
  Country: FR (occurrence: FR)
  Receive Date: 20220909
  Receipt Date: 20220909
  Transmission Date: 20221027
  Serious: Yes (Hospitalization)
  Sender: FDA-Public Use
  Company Number: None

PATIENT
  Age: 73 Year
  Sex: Male

DRUGS (1)
  1. LIBTAYO [Suspect]
     Active Substance: CEMIPLIMAB-RWLC
     Indication: Squamous cell carcinoma
     Dosage: 350 MG, QOD
     Route: 042
     Dates: start: 20200325, end: 20220218

REACTIONS (1)
  - Adrenocorticotropic hormone deficiency [Not Recovered/Not Resolved]

NARRATIVE: CASE EVENT DATE: 20220817
